FAERS Safety Report 17034540 (Version 3)
Quarter: 2019Q4

REPORT INFORMATION
  Report Type: Spontaneous
  Country: JP (occurrence: JP)
  Receive Date: 20191115
  Receipt Date: 20191223
  Transmission Date: 20200122
  Serious: Yes (Hospitalization)
  Sender: FDA-Public Use
  Company Number: NVSJ2019JP002027

PATIENT
  Age: 13 Year
  Sex: Male

DRUGS (5)
  1. METHYLPREDNISOLONE. [Concomitant]
     Active Substance: METHYLPREDNISOLONE
     Indication: PROPHYLAXIS AGAINST TRANSPLANT REJECTION
     Route: 065
  2. TACROLIMUS. [Concomitant]
     Active Substance: TACROLIMUS
     Indication: PROPHYLAXIS AGAINST TRANSPLANT REJECTION
     Dosage: UNK
     Route: 065
  3. FUROSEMIDE. [Concomitant]
     Active Substance: FUROSEMIDE
     Indication: PRODUCT USED FOR UNKNOWN INDICATION
     Route: 042
  4. MYCOPHENOLATE MOFETIL. [Concomitant]
     Active Substance: MYCOPHENOLATE MOFETIL
     Indication: PROPHYLAXIS AGAINST TRANSPLANT REJECTION
     Dosage: UNK
     Route: 065
  5. SIMULECT [Suspect]
     Active Substance: BASILIXIMAB
     Indication: PROPHYLAXIS AGAINST TRANSPLANT REJECTION
     Dosage: UNK
     Route: 042

REACTIONS (9)
  - Mucosal necrosis [Unknown]
  - Ureteral cyst [Recovered/Resolved]
  - Ureteral necrosis [Recovered/Resolved]
  - Blood creatinine increased [Unknown]
  - Post procedural urine leak [Recovered/Resolved]
  - Periureteral collection [Unknown]
  - Hypercalciuria [Unknown]
  - Hydronephrosis [Recovered/Resolved]
  - Renal impairment [Recovered/Resolved]
